FAERS Safety Report 13017524 (Version 1)
Quarter: 2016Q4

REPORT INFORMATION
  Report Type: Spontaneous
  Country: US (occurrence: US)
  Receive Date: 20161209
  Receipt Date: 20161209
  Transmission Date: 20170207
  Serious: No
  Sender: FDA-Public Use
  Company Number: None

PATIENT
  Age: 16 Year
  Sex: Female

DRUGS (1)
  1. HUMIRA [Suspect]
     Active Substance: ADALIMUMAB
     Indication: JUVENILE IDIOPATHIC ARTHRITIS
     Dosage: 40MG EVERY 2 WEEKS SUB-Q
     Route: 058
     Dates: start: 20160831

REACTIONS (12)
  - Back pain [None]
  - Asthenia [None]
  - Injection site pain [None]
  - Depressed mood [None]
  - Fear [None]
  - Malaise [None]
  - Nausea [None]
  - Arthralgia [None]
  - Pain in extremity [None]
  - Insomnia [None]
  - Injection site bruising [None]
  - School refusal [None]

NARRATIVE: CASE EVENT DATE: 20160930
